FAERS Safety Report 4311064-8 (Version None)
Quarter: 2004Q1

REPORT INFORMATION
  Report Type: 
  Country: None (occurrence: None)
  Receive Date: 20040302
  Receipt Date: 20040220
  Transmission Date: 20041129
  Serious: Yes (Hospitalization)
  Sender: FDA-Public Use
  Company Number: 2004008145

PATIENT
  Age: 71 Year
  Sex: Female

DRUGS (15)
  1. LITHIUM CARBONATE [Suspect]
     Indication: ILL-DEFINED DISORDER
  2. OXCARBAZEPINE (OXCARBAZEPINE) [Concomitant]
  3. OLANZAPINE [Concomitant]
  4. ACETYLSALICYLIC ACID SRT [Concomitant]
  5. DOCUSATE SODIUM (DOCUSATE SODIUM) [Concomitant]
  6. LISINOPRIL [Concomitant]
  7. METOPROLOL TARTRATE [Concomitant]
  8. NEPHROCAPS (FOLIC ACID, VITAMINS NOS) [Concomitant]
  9. PANTOPRAZOLE (PANTOPRAZOLE) [Concomitant]
  10. PYRIDOXINE HCL [Concomitant]
  11. SEVELAMER HYDROCHLORIDE (SEVELAMER HYDROCHLORIDE) [Concomitant]
  12. SIMVASTATIN [Concomitant]
  13. ERYTHROPOIETIN (ERYTHROPOIETIN) [Concomitant]
  14. PARICALCITOL (PARICALCITOL) [Concomitant]
  15. DIMETICONE, ACTIVATED (SIMETICONE) [Concomitant]

REACTIONS (5)
  - BIPOLAR DISORDER [None]
  - DELUSION [None]
  - DIALYSIS [None]
  - RENAL FAILURE CHRONIC [None]
  - SCHIZOPHRENIA [None]
